FAERS Safety Report 6261473-5 (Version None)
Quarter: 2009Q3

REPORT INFORMATION
  Report Type: 
  Country: None (occurrence: None)
  Receive Date: 20090707
  Receipt Date: 20090707
  Transmission Date: 20100115
  Serious: No
  Sender: FDA-Public Use
  Company Number: None

PATIENT
  Age: 46 Year
  Sex: Female
  Weight: 45.3597 kg

DRUGS (4)
  1. PEGASYS [Suspect]
     Indication: HEPATITIS C
     Dosage: 1 INJECTION VIAL 1X WEEKLY
     Dates: start: 20060501, end: 20070401
  2. COPEGASYA RIBOVIRON ROCHE [Suspect]
     Indication: HEPATITIS C
     Dosage: PILLS 5X DAILY
     Dates: start: 20060501, end: 20070401
  3. PEGASYS [Concomitant]
  4. COPEGASYS [Concomitant]

REACTIONS (6)
  - ARTHRALGIA [None]
  - BONE PAIN [None]
  - DEPRESSION [None]
  - FRUSTRATION [None]
  - MYALGIA [None]
  - OSTEOPOROSIS [None]
